FAERS Safety Report 21751979 (Version 1)
Quarter: 2022Q4

REPORT INFORMATION
  Report Type: Spontaneous
  Country: US (occurrence: US)
  Receive Date: 20221220
  Receipt Date: 20221220
  Transmission Date: 20230112
  Serious: No
  Sender: FDA-Public Use
  Company Number: US-BRISTOL-MYERS SQUIBB COMPANY-2022-155496

PATIENT
  Age: 60 Year
  Sex: Male
  Weight: 83.91 kg

DRUGS (2)
  1. LENALIDOMIDE [Suspect]
     Active Substance: LENALIDOMIDE
     Indication: Plasma cell myeloma
     Dosage: FREQ - 21 DAYS ON AND 7 DAYS OFF
     Route: 048
  2. LENALIDOMIDE [Suspect]
     Active Substance: LENALIDOMIDE
     Dosage: FREQ - DAILY X 21 DAYS ON AND 7 DAYS OFF
     Route: 048
     Dates: start: 20210726

REACTIONS (2)
  - Back pain [Not Recovered/Not Resolved]
  - Muscle spasms [Recovered/Resolved]
